FAERS Safety Report 21043571 (Version 2)
Quarter: 2022Q3

REPORT INFORMATION
  Report Type: Spontaneous
  Country: LT (occurrence: LT)
  Receive Date: 20220705
  Receipt Date: 20220725
  Transmission Date: 20221027
  Serious: Yes (Other)
  Sender: FDA-Public Use
  Company Number: LT-BAYER-2022P006184

PATIENT
  Age: 66 Year
  Sex: Male

DRUGS (2)
  1. NEXAVAR [Suspect]
     Active Substance: SORAFENIB
     Indication: Hepatocellular carcinoma
     Dosage: 400 MG, BID
     Dates: start: 20201028, end: 20210504
  2. STIVARGA [Suspect]
     Active Substance: REGORAFENIB
     Indication: Hepatocellular carcinoma
     Dosage: 160 MG, QD
     Dates: start: 20210505, end: 20220113

REACTIONS (9)
  - Hepatocellular carcinoma [Recovering/Resolving]
  - Dry skin [Recovering/Resolving]
  - Dry skin [Not Recovered/Not Resolved]
  - Skin fissures [Not Recovered/Not Resolved]
  - Diarrhoea [None]
  - General physical health deterioration [None]
  - Asthenia [None]
  - Alpha 1 foetoprotein increased [None]
  - Alpha 1 foetoprotein increased [None]

NARRATIVE: CASE EVENT DATE: 20200101
